FAERS Safety Report 8878999 (Version 7)
Quarter: 2014Q4

REPORT INFORMATION
  Report Type: Spontaneous
  Country: US (occurrence: US)
  Receive Date: 20121026
  Receipt Date: 20141003
  Transmission Date: 20150529
  Serious: Yes (Hospitalization, Other)
  Sender: FDA-Public Use
  Company Number: US-009507513-1210USA008246

PATIENT
  Sex: Female

DRUGS (3)
  1. ALENDRONATE SODIUM. [Suspect]
     Active Substance: ALENDRONATE SODIUM
     Indication: OSTEOPOROSIS
     Dosage: 70 DF, UNK
     Route: 048
     Dates: start: 20080312, end: 20110913
  2. CENTRUM SILVER [Concomitant]
     Active Substance: VITAMINS
     Dosage: 1 TAB, QD
     Dates: start: 1990
  3. FOSAMAX [Suspect]
     Active Substance: ALENDRONATE SODIUM
     Indication: OSTEOPOROSIS
     Dosage: 70 MG, UNK
     Route: 048
     Dates: start: 20070502, end: 201112

REACTIONS (25)
  - Bone graft [Unknown]
  - Supraventricular tachycardia [Unknown]
  - Hypotension [Unknown]
  - Surgery [Unknown]
  - Blood cholesterol increased [Unknown]
  - Osteoarthritis [Unknown]
  - Osteopenia [Unknown]
  - Scoliosis [Unknown]
  - Femur fracture [Unknown]
  - Intramedullary rod insertion [Unknown]
  - Cardiac failure congestive [Unknown]
  - Hypothyroidism [Unknown]
  - Cholelithiasis [Unknown]
  - Bradycardia [Unknown]
  - Hip arthroplasty [Unknown]
  - Rib fracture [Unknown]
  - Spinal osteoarthritis [Unknown]
  - Low turnover osteopathy [Unknown]
  - Fracture nonunion [Unknown]
  - Anaemia [Not Recovered/Not Resolved]
  - Hypertension [Unknown]
  - Device failure [Unknown]
  - Thrombocytopenia [Unknown]
  - Syncope [Unknown]
  - Carotid artery stenosis [Unknown]

NARRATIVE: CASE EVENT DATE: 20101107
